FAERS Safety Report 25480034 (Version 1)
Quarter: 2025Q2

REPORT INFORMATION
  Report Type: Spontaneous
  Country: MX (occurrence: MX)
  Receive Date: 20250625
  Receipt Date: 20250625
  Transmission Date: 20250716
  Serious: Yes (Hospitalization)
  Sender: JOHNSON AND JOHNSON
  Company Number: MX-JNJFOC-20250631341

PATIENT
  Age: 78 Year
  Sex: Female
  Weight: 51 kg

DRUGS (1)
  1. XARELTO [Suspect]
     Active Substance: RIVAROXABAN
     Indication: Product used for unknown indication
     Dosage: 15 MG, QD
     Route: 048
     Dates: start: 202506

REACTIONS (1)
  - Angina pectoris [Unknown]

NARRATIVE: CASE EVENT DATE: 20250601
